FAERS Safety Report 22281147 (Version 2)
Quarter: 2025Q2

REPORT INFORMATION
  Report Type: Spontaneous
  Country: US (occurrence: US)
  Receive Date: 20230504
  Receipt Date: 20250528
  Transmission Date: 20250716
  Serious: No
  Sender: CIPLA
  Company Number: US-CIPLA LTD.-2023US01072

PATIENT

DRUGS (2)
  1. ALBUTEROL [Suspect]
     Active Substance: ALBUTEROL
     Indication: Pneumonia bacterial
     Route: 065
     Dates: start: 202207
  2. ALBUTEROL [Suspect]
     Active Substance: ALBUTEROL
     Indication: Dyspnoea
     Route: 065
     Dates: start: 20230130

REACTIONS (7)
  - Incorrect dose administered by device [Unknown]
  - Off label use [Unknown]
  - Product delivery mechanism issue [Unknown]
  - Device delivery system issue [Unknown]
  - Device defective [Unknown]
  - Drug ineffective for unapproved indication [Unknown]
  - Product storage error [Unknown]

NARRATIVE: CASE EVENT DATE: 20220701
